FAERS Safety Report 7395531-9 (Version None)
Quarter: 2011Q2

REPORT INFORMATION
  Report Type: 
  Country: None (occurrence: None)
  Receive Date: 20110405
  Receipt Date: 20110329
  Transmission Date: 20111010
  Serious: Yes (Other)
  Sender: FDA-Public Use
  Company Number: BR-PFIZER INC-2011063284

PATIENT
  Age: 16 Month
  Sex: Male
  Weight: 8.7 kg

DRUGS (1)
  1. DOSTINEX [Suspect]
     Indication: LACTATION INHIBITION THERAPY
     Dosage: 1 TABLET OF 0.5MG EVERY 5 DAYS (TOTAL OF 3 TABLETS)
     Route: 063
     Dates: start: 20110201, end: 20110101

REACTIONS (2)
  - HYPERSENSITIVITY [None]
  - DRUG EXPOSURE VIA BREAST MILK [None]
